FAERS Safety Report 9639783 (Version 2)
Quarter: 2013Q4

REPORT INFORMATION
  Report Type: Report from Study
  Country: FR (occurrence: FR)
  Receive Date: 20131023
  Receipt Date: 20131114
  Transmission Date: 20140711
  Serious: Yes (Death)
  Sender: FDA-Public Use
  Company Number: FR-ROCHE-1292071

PATIENT
  Age: 61 Year
  Sex: Male
  Weight: 100 kg

DRUGS (5)
  1. ZELBORAF [Suspect]
     Indication: NEOPLASM MALIGNANT
     Dosage: 6 DF
     Route: 048
     Dates: start: 201302, end: 201306
  2. AMLOR [Concomitant]
     Dosage: 1 DF
     Route: 048
  3. NEBILOX [Concomitant]
     Route: 048
  4. INEXIUM [Concomitant]
     Dosage: 1 DF
     Route: 048
  5. DOLIPRANE [Concomitant]
     Route: 048

REACTIONS (2)
  - Disease progression [Fatal]
  - Photosensitivity reaction [Not Recovered/Not Resolved]
